FAERS Safety Report 19867525 (Version 1)
Quarter: 2021Q3

REPORT INFORMATION
  Report Type: Spontaneous
  Country: US (occurrence: US)
  Receive Date: 20210922
  Receipt Date: 20210922
  Transmission Date: 20211014
  Serious: Yes (Hospitalization)
  Sender: FDA-Public Use
  Company Number: US-NOVITIUMPHARMA-2021USNVP00080

PATIENT
  Age: 87 Year
  Sex: Female

DRUGS (1)
  1. DIAZOXIDE ORAL SUSPENSION USP, 50 MG/ML [Suspect]
     Active Substance: DIAZOXIDE
     Indication: INSULINOMA

REACTIONS (1)
  - Fluid retention [Unknown]
